FAERS Safety Report 4599229-1 (Version None)
Quarter: 2005Q1

REPORT INFORMATION
  Report Type: 
  Country: None (occurrence: None)
  Receive Date: 20050302
  Receipt Date: 20050302
  Transmission Date: 20050727
  Serious: Yes (Hospitalization)
  Sender: FDA-Public Use
  Company Number: None

PATIENT
  Age: 79 Year
  Sex: Female
  Weight: 92.0802 kg

DRUGS (3)
  1. XELODA [Suspect]
     Indication: CHEMOTHERAPY
     Dates: start: 20041129, end: 20050227
  2. XELODA [Suspect]
     Indication: PANCREATIC CARCINOMA
     Dates: start: 20041129, end: 20050227
  3. XELODA [Suspect]

REACTIONS (2)
  - INFLUENZA [None]
  - UROSEPSIS [None]
